FAERS Safety Report 4510180-5 (Version None)
Quarter: 2004Q4

REPORT INFORMATION
  Report Type: 
  Country: None (occurrence: None)
  Receive Date: 20041119
  Receipt Date: 20041111
  Transmission Date: 20050328
  Serious: Yes (Death, Hospitalization)
  Sender: FDA-Public Use
  Company Number: DE-2004-032032

PATIENT
  Age: 49 Year
  Sex: Male

DRUGS (1)
  1. REFLUDAN [Suspect]
     Indication: HEPARIN-INDUCED THROMBOCYTOPENIA
     Dosage: SEE IMAGE
     Dates: start: 20040906

REACTIONS (6)
  - DEEP VEIN THROMBOSIS [None]
  - GANGRENE [None]
  - HEPATIC FAILURE [None]
  - LEG AMPUTATION [None]
  - SEPSIS [None]
  - VENA CAVA THROMBOSIS [None]
